FAERS Safety Report 14621070 (Version 1)
Quarter: 2018Q1

REPORT INFORMATION
  Report Type: Spontaneous
  Country: BE (occurrence: BE)
  Receive Date: 20180309
  Receipt Date: 20180309
  Transmission Date: 20180509
  Serious: Yes (Hospitalization, Other)
  Sender: FDA-Public Use
  Company Number: BE-AUROBINDO-AUR-APL-2018-009619

PATIENT
  Age: 57 Year
  Sex: Female

DRUGS (2)
  1. BISOPROLOL [Concomitant]
     Active Substance: BISOPROLOL
     Indication: PRODUCT USED FOR UNKNOWN INDICATION
     Route: 065
  2. AMOXICILLIN+CLAVULANIC ACID [Suspect]
     Active Substance: AMOXICILLIN\CLAVULANIC ACID
     Indication: PNEUMONIA
     Dosage: ()
     Route: 065

REACTIONS (7)
  - Anaplastic large cell lymphoma T- and null-cell types [Recovered/Resolved]
  - Septic shock [Unknown]
  - Pleural effusion [Unknown]
  - Respiratory distress [Unknown]
  - Herpes virus infection [Unknown]
  - Drug ineffective [Unknown]
  - Respiratory failure [Unknown]
